FAERS Safety Report 23618986 (Version 1)
Quarter: 2024Q1

REPORT INFORMATION
  Report Type: Spontaneous
  Country: TR (occurrence: TR)
  Receive Date: 20240311
  Receipt Date: 20240311
  Transmission Date: 20240410
  Serious: Yes (Other)
  Sender: FDA-Public Use
  Company Number: TR-ELI_LILLY_AND_COMPANY-TR202402017738

PATIENT
  Age: 26 Year
  Sex: Female

DRUGS (1)
  1. IXEKIZUMAB [Suspect]
     Active Substance: IXEKIZUMAB
     Indication: Psoriasis
     Dosage: 80 MG, OTHER(EVERY TWO WEEKS)
     Route: 058

REACTIONS (1)
  - Diarrhoea [Not Recovered/Not Resolved]
